FAERS Safety Report 15849378 (Version 2)
Quarter: 2019Q1

REPORT INFORMATION
  Report Type: Spontaneous
  Country: SK (occurrence: SK)
  Receive Date: 20190121
  Receipt Date: 20190128
  Transmission Date: 20190417
  Serious: Yes (Death)
  Sender: FDA-Public Use
  Company Number: SK-SA-2019SA013800

PATIENT
  Age: 46 Year
  Sex: Female

DRUGS (9)
  1. ATROVENT [Concomitant]
     Active Substance: IPRATROPIUM BROMIDE
  2. DOPEGYT [Concomitant]
     Active Substance: METHYLDOPA
  3. AUBAGIO [Suspect]
     Active Substance: TERIFLUNOMIDE
     Indication: MULTIPLE SCLEROSIS
     Dosage: UNK UNK, UNK
     Route: 048
     Dates: start: 201701, end: 201812
  4. EUTHYROX [Concomitant]
     Active Substance: LEVOTHYROXINE SODIUM
  5. URAPIDIL [Concomitant]
     Active Substance: URAPIDIL
  6. TENSIOMIN [Concomitant]
     Active Substance: CAPTOPRIL
  7. AGEN [Concomitant]
     Active Substance: AMLODIPINE BESYLATE
  8. FURON [FUROSEMIDE] [Concomitant]
  9. LEXAURIN [Concomitant]
     Active Substance: BROMAZEPAM

REACTIONS (1)
  - Myocardial infarction [Fatal]
